FAERS Safety Report 21104647 (Version 1)
Quarter: 2022Q3

REPORT INFORMATION
  Report Type: Spontaneous
  Country: US (occurrence: None)
  Receive Date: 20220720
  Receipt Date: 20220720
  Transmission Date: 20221027
  Serious: No
  Sender: FDA-Public Use
  Company Number: US-INSYS Therapeutics, Inc-BEN202109-000002

PATIENT
  Age: 4 Year
  Sex: Female

DRUGS (1)
  1. SYNDROS [Suspect]
     Active Substance: DRONABINOL
     Indication: Product used for unknown indication
     Dates: start: 202107, end: 202109

REACTIONS (3)
  - Muscle twitching [Unknown]
  - Withdrawal syndrome [Unknown]
  - Product use issue [Unknown]

NARRATIVE: CASE EVENT DATE: 20210701
